FAERS Safety Report 26216432 (Version 1)
Quarter: 2025Q4

REPORT INFORMATION
  Report Type: Spontaneous
  Country: RU (occurrence: RU)
  Receive Date: 20251231
  Receipt Date: 20251231
  Transmission Date: 20260118
  Serious: Yes (Other)
  Sender: RANBAXY
  Company Number: RU-SUN PHARMACEUTICAL INDUSTRIES LTD-2025R1-544288

PATIENT
  Age: 16 Year
  Sex: Male

DRUGS (1)
  1. RIMANTADINE [Suspect]
     Active Substance: RIMANTADINE HYDROCHLORIDE
     Indication: Product used for unknown indication
     Dosage: UNK
     Route: 065

REACTIONS (4)
  - Product administration error [Unknown]
  - Tachycardia [Recovering/Resolving]
  - Blood pressure increased [Recovering/Resolving]
  - Tremor [Recovering/Resolving]

NARRATIVE: CASE EVENT DATE: 20251220
